FAERS Safety Report 4387813-X (Version None)
Quarter: 2004Q2

REPORT INFORMATION
  Report Type: 
  Country: None (occurrence: None)
  Receive Date: 20040623
  Receipt Date: 20040607
  Transmission Date: 20050107
  Serious: Yes (Other)
  Sender: FDA-Public Use
  Company Number: USA040156954

PATIENT
  Sex: Female

DRUGS (3)
  1. FORTEO [Suspect]
     Indication: OSTEOPOROSIS
     Dosage: 20 UG/1 DAY
     Dates: start: 20030101
  2. VANCOMYCIN-VI (VANCOMYCIN) (VANCOMYCIN HDYROCHLORID) [Suspect]
     Indication: CELLULITIS
  3. PREDNISONE [Concomitant]

REACTIONS (10)
  - CELLULITIS [None]
  - FALL [None]
  - FATIGUE [None]
  - INFECTION [None]
  - INJECTION SITE ERYTHEMA [None]
  - INJECTION SITE RASH [None]
  - INJECTION SITE URTICARIA [None]
  - MUSCLE CRAMP [None]
  - PAIN IN EXTREMITY [None]
  - PHARMACEUTICAL PRODUCT COMPLAINT [None]
